FAERS Safety Report 17798322 (Version 1)
Quarter: 2020Q2

REPORT INFORMATION
  Report Type: Other
  Country: SK (occurrence: SK)
  Receive Date: 20200518
  Receipt Date: 20200518
  Transmission Date: 20200714
  Serious: Yes (Hospitalization, Other)
  Sender: FDA-Public Use
  Company Number: SK-APOTEX-2020AP011001

PATIENT
  Age: 81 Year
  Sex: Female

DRUGS (6)
  1. NAKOM MITE [Concomitant]
     Active Substance: CARBIDOPA\LEVODOPA
     Indication: PRODUCT USED FOR UNKNOWN INDICATION
     Dosage: 1 DF
     Route: 048
  2. FRONTIN [Concomitant]
     Active Substance: ALPRAZOLAM
     Indication: DEPRESSION
     Dosage: 2 DF, BID, 0.5MG
     Route: 048
  3. CAVINTON [Concomitant]
     Active Substance: VINPOCETINE
     Indication: PRODUCT USED FOR UNKNOWN INDICATION
     Dosage: 10 MG, BID
     Route: 048
  4. SEROXAT [Suspect]
     Active Substance: PAROXETINE HYDROCHLORIDE
     Indication: DEPRESSION
     Dosage: 20 MG, QD
     Route: 048
  5. FRONTIN [Concomitant]
     Active Substance: ALPRAZOLAM
     Indication: INSOMNIA
  6. CO PRENESSA [Suspect]
     Active Substance: INDAPAMIDE\PERINDOPRIL ERBUMINE
     Indication: HYPERTENSION
     Dosage: 1 DF, QD
     Route: 048

REACTIONS (2)
  - Hypokalaemia [Recovered/Resolved]
  - Hyponatraemia [Recovered/Resolved]

NARRATIVE: CASE EVENT DATE: 20200307
